FAERS Safety Report 21552416 (Version 1)
Quarter: 2022Q4

REPORT INFORMATION
  Report Type: Spontaneous
  Country: PT (occurrence: PT)
  Receive Date: 20221104
  Receipt Date: 20221104
  Transmission Date: 20230112
  Serious: Yes (Hospitalization, Other)
  Sender: FDA-Public Use
  Company Number: PT-SA-2022SA446431

PATIENT
  Age: 67 Year
  Sex: Male

DRUGS (1)
  1. ENOXAPARIN SODIUM [Suspect]
     Active Substance: ENOXAPARIN SODIUM
     Indication: Atrial fibrillation
     Dosage: THERAPEUTIC DOSE

REACTIONS (7)
  - Retroperitoneal haematoma [Recovering/Resolving]
  - Lumbosacral plexopathy [Recovering/Resolving]
  - Flank pain [Recovering/Resolving]
  - Hypoaesthesia [Recovering/Resolving]
  - Asthenia [Recovering/Resolving]
  - Monoparesis [Recovering/Resolving]
  - Areflexia [Recovering/Resolving]
